FAERS Safety Report 15644315 (Version 2)
Quarter: 2019Q1

REPORT INFORMATION
  Report Type: Spontaneous
  Country: FR (occurrence: FR)
  Receive Date: 20181121
  Receipt Date: 20190129
  Transmission Date: 20190417
  Serious: Yes (Disabling)
  Sender: FDA-Public Use
  Company Number: FR-009507513-1811FRA007388

PATIENT
  Age: 78 Year
  Sex: Female
  Weight: 58 kg

DRUGS (14)
  1. FRAGMINE [Concomitant]
     Active Substance: DALTEPARIN SODIUM
  2. RIVOTRIL [Concomitant]
     Active Substance: CLONAZEPAM
  3. LANSOPRAZOLE. [Concomitant]
     Active Substance: LANSOPRAZOLE
  4. ACETAMINOPHEN. [Concomitant]
     Active Substance: ACETAMINOPHEN
  5. LEVOTHYROXINE SODIUM. [Concomitant]
     Active Substance: LEVOTHYROXINE SODIUM
  6. TEMODAL [Suspect]
     Active Substance: TEMOZOLOMIDE
     Indication: GLIOBLASTOMA
     Dosage: 1 CAPSULE 5 DAYS / 28 DAYS
     Route: 048
     Dates: start: 20180818, end: 20181015
  7. PULMICORT TURBUHALER [Concomitant]
     Active Substance: BUDESONIDE
  8. DUPHALAC [Concomitant]
     Active Substance: LACTULOSE
  9. AVASTIN [Suspect]
     Active Substance: BEVACIZUMAB
     Indication: GLIOBLASTOMA
     Route: 042
     Dates: start: 20180818, end: 20181001
  10. KEPPRA [Concomitant]
     Active Substance: LEVETIRACETAM
  11. PRIMPERAN [Concomitant]
     Active Substance: METOCLOPRAMIDE HYDROCHLORIDE
  12. LAROXYL [Concomitant]
     Active Substance: AMITRIPTYLINE HYDROCHLORIDE
  13. INSTANYL [Concomitant]
     Active Substance: FENTANYL
  14. INSULIN [Concomitant]
     Active Substance: INSULIN NOS

REACTIONS (1)
  - Female genital tract fistula [Not Recovered/Not Resolved]

NARRATIVE: CASE EVENT DATE: 20181004
